FAERS Safety Report 6192775-9 (Version None)
Quarter: 2009Q2

REPORT INFORMATION
  Report Type: 
  Country: None (occurrence: None)
  Receive Date: 20090518
  Receipt Date: 20081205
  Transmission Date: 20091009
  Serious: Yes (Hospitalization)
  Sender: FDA-Public Use
  Company Number: US-TYCO HEALTHCARE/MALLINCKRODT-T200801891

PATIENT

DRUGS (8)
  1. ACETAMINOPHEN AND HYDROCODONE BITARTRATE [Suspect]
     Indication: PAIN
     Dosage: UNK
     Route: 048
     Dates: start: 20070802
  2. DILAUDID [Suspect]
     Indication: PAIN
     Dosage: 2 MG, Q3H
     Route: 048
     Dates: start: 20080714
  3. SCH 900105 (S-P) (HUMANIZED ANTI-HGF) [Suspect]
     Indication: NEOPLASM MALIGNANT
     Dosage: 2 MG/KG,Q14 DAYS
     Route: 042
     Dates: start: 20081008
  4. DURAGESIC-100 [Suspect]
     Indication: PAIN
     Dosage: 25 UG, UNK
     Route: 062
     Dates: start: 20080229
  5. CELEBREX [Concomitant]
     Dosage: 100 MG, BID
     Route: 048
     Dates: start: 20080917
  6. LEVAQUIN [Concomitant]
     Dosage: UNK
     Route: 049
     Dates: start: 20080925
  7. DEXAMETHASONE 4MG TAB [Concomitant]
     Dosage: 4 MG, BID
     Dates: start: 20081023, end: 20080101
  8. DEXAMETHASONE 4MG TAB [Concomitant]
     Dosage: 4 MG, QD
     Dates: start: 20080101

REACTIONS (1)
  - CONSTIPATION [None]
